FAERS Safety Report 5320104-9 (Version None)
Quarter: 2007Q2

REPORT INFORMATION
  Report Type: 
  Country: None (occurrence: None)
  Receive Date: 20070503
  Receipt Date: 20070424
  Transmission Date: 20071010
  Serious: Yes (Other)
  Sender: FDA-Public Use
  Company Number: 232328K07USA

PATIENT
  Age: 53 Year
  Sex: Female

DRUGS (3)
  1. REBIF [Suspect]
     Indication: MULTIPLE SCLEROSIS
     Dosage: 44 MCG, 3 IN 1 WEEKS, SUBCUTANEOUS
     Route: 058
     Dates: start: 20021216
  2. TYLENOL (COTYLENOL) [Concomitant]
  3. FOLIC ACID [Concomitant]

REACTIONS (2)
  - GAIT DISTURBANCE [None]
  - RHEUMATOID ARTHRITIS [None]
